FAERS Safety Report 23515790 (Version 1)
Quarter: 2024Q1

REPORT INFORMATION
  Report Type: Spontaneous
  Country: HR (occurrence: HR)
  Receive Date: 20240213
  Receipt Date: 20240213
  Transmission Date: 20240409
  Serious: Yes (Other)
  Sender: FDA-Public Use
  Company Number: None

PATIENT
  Age: 59 Year
  Sex: Female
  Weight: 65 kg

DRUGS (1)
  1. COPAXONE [Suspect]
     Active Substance: GLATIRAMER ACETATE
     Indication: Multiple sclerosis
     Dosage: THE STRENGTH OF THE DRUG?3X40 MCG S.C. 3 TIMES A WEEK??DOSAGE?3X40 MCG S.C. 3 TIMES A WEEK
     Route: 058
     Dates: start: 201212, end: 202312

REACTIONS (2)
  - Skin induration [Not Recovered/Not Resolved]
  - Application site reaction [Not Recovered/Not Resolved]

NARRATIVE: CASE EVENT DATE: 20200101
